FAERS Safety Report 18516704 (Version 1)
Quarter: 2020Q4

REPORT INFORMATION
  Report Type: Spontaneous
  Country: US (occurrence: US)
  Receive Date: 20201117
  Receipt Date: 20201117
  Transmission Date: 20210114
  Serious: No
  Sender: FDA-Public Use
  Company Number: None

PATIENT
  Sex: Female

DRUGS (1)
  1. BENLYSTA [Suspect]
     Active Substance: BELIMUMAB
     Indication: LUPUS-LIKE SYNDROME
     Route: 058
     Dates: start: 20201013

REACTIONS (4)
  - Drug ineffective [None]
  - Pain in extremity [None]
  - Headache [None]
  - Fatigue [None]
